FAERS Safety Report 20192834 (Version 2)
Quarter: 2022Q1

REPORT INFORMATION
  Report Type: Spontaneous
  Country: US (occurrence: US)
  Receive Date: 20211216
  Receipt Date: 20220112
  Transmission Date: 20220423
  Serious: No
  Sender: FDA-Public Use
  Company Number: US-UNITED THERAPEUTICS-UNT-2021-025642

PATIENT
  Sex: Female
  Weight: 76.009 kg

DRUGS (2)
  1. REMODULIN [Suspect]
     Active Substance: TREPROSTINIL
     Indication: Pulmonary arterial hypertension
     Dosage: UNK, CONTINUING
     Route: 058
     Dates: start: 20210816
  2. REMODULIN [Suspect]
     Active Substance: TREPROSTINIL
     Dosage: 0.028 ?G/KG, CONTINUING
     Route: 058
     Dates: start: 2021

REACTIONS (6)
  - Feeling abnormal [Unknown]
  - Hot flush [Unknown]
  - Infusion site pain [Unknown]
  - Weight decreased [Unknown]
  - Device issue [Unknown]
  - Aggression [Unknown]

NARRATIVE: CASE EVENT DATE: 20210101
